FAERS Safety Report 26082548 (Version 1)
Quarter: 2025Q4

REPORT INFORMATION
  Report Type: Spontaneous
  Country: US (occurrence: US)
  Receive Date: 20251124
  Receipt Date: 20251124
  Transmission Date: 20260117
  Serious: No
  Sender: MISSION PHARMACAL COMPANY
  Company Number: US-Mission Pharmacal Company-2189212

PATIENT
  Age: 78 Year
  Sex: Male

DRUGS (13)
  1. THIOLA EC [Suspect]
     Active Substance: TIOPRONIN
     Indication: Cystinuria
     Dates: start: 20200516
  2. POTASSIUM CITRATE [Concomitant]
     Active Substance: POTASSIUM CITRATE
  3. JANUMET [Concomitant]
     Active Substance: METFORMIN HYDROCHLORIDE\SITAGLIPTIN PHOSPHATE
  4. ROSUVASTATIN [Concomitant]
     Active Substance: ROSUVASTATIN
  5. VITAMINS [Concomitant]
     Active Substance: VITAMINS
  6. FISH OIL [Concomitant]
     Active Substance: FISH OIL
  7. INDAPAMIDE [Concomitant]
     Active Substance: INDAPAMIDE
  8. LEVOTHYROXINE [Concomitant]
     Active Substance: LEVOTHYROXINE
  9. TAMSULOSIN [Concomitant]
     Active Substance: TAMSULOSIN
  10. FINASTERIDE [Concomitant]
     Active Substance: FINASTERIDE
  11. FENOFIBRATE [Concomitant]
     Active Substance: FENOFIBRATE
  12. CAPTOPRIL [Concomitant]
     Active Substance: CAPTOPRIL
  13. ASPIRIN [Concomitant]
     Active Substance: ASPIRIN

REACTIONS (1)
  - Dehydration [Unknown]
